FAERS Safety Report 11681416 (Version 1)
Quarter: 2015Q4

REPORT INFORMATION
  Report Type: Spontaneous
  Country: US (occurrence: None)
  Receive Date: 20151028
  Receipt Date: 20151028
  Transmission Date: 20160304
  Serious: Yes (Life-Threatening, Hospitalization)
  Sender: FDA-Public Use
  Company Number: None

PATIENT
  Age: 58 Year
  Sex: Female
  Weight: 49.9 kg

DRUGS (2)
  1. MEGACE [Suspect]
     Active Substance: MEGESTROL ACETATE
     Indication: PRODUCT USED FOR UNKNOWN INDICATION
     Dosage: 250?1 TEASPOO 2 DAL?TWICE?MOUTH
     Route: 048
     Dates: start: 20140915
  2. WARFARIN [Concomitant]
     Active Substance: WARFARIN

REACTIONS (10)
  - Headache [None]
  - Weight decreased [None]
  - Thrombosis [None]
  - Blood disorder [None]
  - Nerve injury [None]
  - International normalised ratio abnormal [None]
  - General physical health deterioration [None]
  - Malaise [None]
  - Cardiac disorder [None]
  - Feeding disorder [None]

NARRATIVE: CASE EVENT DATE: 20141113
